FAERS Safety Report 4825749-8 (Version None)
Quarter: 2005Q4

REPORT INFORMATION
  Report Type: 
  Country: None (occurrence: None)
  Receive Date: 20051109
  Receipt Date: 20051027
  Transmission Date: 20060501
  Serious: Yes (Hospitalization)
  Sender: FDA-Public Use
  Company Number: 2005148200

PATIENT
  Age: 18 Month
  Sex: Female
  Weight: 11 kg

DRUGS (1)
  1. GLIPIZIDE [Suspect]
     Indication: ILL-DEFINED DISORDER
     Dosage: 10 MG ORAL
     Route: 048

REACTIONS (2)
  - ACCIDENTAL DRUG INTAKE BY CHILD [None]
  - BLOOD GLUCOSE DECREASED [None]
